FAERS Safety Report 20598899 (Version 1)
Quarter: 2022Q1

REPORT INFORMATION
  Report Type: Other
  Country: US (occurrence: None)
  Receive Date: 20220315
  Receipt Date: 20220315
  Transmission Date: 20220423
  Serious: Yes (Other)
  Sender: FDA-Public Use
  Company Number: US-ROCHE-3042458

PATIENT
  Sex: Female

DRUGS (1)
  1. GAZYVA [Suspect]
     Active Substance: OBINUTUZUMAB
     Indication: Chronic lymphocytic leukaemia
     Route: 042

REACTIONS (5)
  - Haemolysis [Unknown]
  - Tumour lysis syndrome [Unknown]
  - Anaemia [Unknown]
  - Pain in extremity [Unknown]
  - Renal failure [Unknown]
